FAERS Safety Report 4814099-1 (Version None)
Quarter: 2005Q4

REPORT INFORMATION
  Report Type: 
  Country: None (occurrence: None)
  Receive Date: 20051028
  Receipt Date: 20050628
  Transmission Date: 20060501
  Serious: No
  Sender: FDA-Public Use
  Company Number: US-GLAXOSMITHKLINE-A0564484A

PATIENT
  Age: 58 Year
  Sex: Male

DRUGS (6)
  1. ADVAIR DISKUS 100/50 [Suspect]
     Indication: ASTHMA
     Dosage: 1PUFF TWICE PER DAY
     Route: 055
     Dates: start: 20050620, end: 20050622
  2. ZYRTEC [Concomitant]
  3. NASONEX [Concomitant]
  4. SALINE [Concomitant]
  5. ZANTAC [Concomitant]
  6. DIOVAN [Concomitant]

REACTIONS (3)
  - BURNING SENSATION [None]
  - CHEST PAIN [None]
  - PEAK EXPIRATORY FLOW RATE DECREASED [None]
